FAERS Safety Report 25523990 (Version 1)
Quarter: 2025Q3

REPORT INFORMATION
  Report Type: Spontaneous
  Country: CN (occurrence: CN)
  Receive Date: 20250707
  Receipt Date: 20250707
  Transmission Date: 20251021
  Serious: Yes (Other)
  Sender: ACCORD
  Company Number: CN-Accord-492816

PATIENT
  Age: 71 Year
  Sex: Female
  Weight: 51 kg

DRUGS (3)
  1. CAPECITABINE [Suspect]
     Active Substance: CAPECITABINE
     Indication: Adenocarcinoma gastric
     Dosage: ON DAYS 1-14 AND THEN ONCE EVERY 3 WEEKS)
     Route: 048
     Dates: start: 20240626, end: 202409
  2. SINTILIMAB [Suspect]
     Active Substance: SINTILIMAB
     Indication: Adenocarcinoma gastric
     Route: 042
     Dates: start: 20240626, end: 202409
  3. CAPECITABINE [Suspect]
     Active Substance: CAPECITABINE
     Indication: Adenocarcinoma gastric
     Dosage: ON DAYS 1-14 AND THEN ONCE EVERY 3 WEEKS)
     Route: 048
     Dates: start: 20240626, end: 202409

REACTIONS (3)
  - Immune-mediated myocarditis [Recovered/Resolved]
  - Arrhythmia [Recovered/Resolved]
  - Thyroiditis [Recovered/Resolved]

NARRATIVE: CASE EVENT DATE: 20240718
